FAERS Safety Report 9520943 (Version 1)
Quarter: 2013Q3

REPORT INFORMATION
  Report Type: Spontaneous
  Country: US (occurrence: US)
  Receive Date: 20130913
  Receipt Date: 20130913
  Transmission Date: 20140515
  Serious: Yes (Hospitalization, Other)
  Sender: FDA-Public Use
  Company Number: US-PFIZER INC-2013262514

PATIENT
  Age: 57 Year
  Sex: Male
  Weight: 67.12 kg

DRUGS (3)
  1. CHANTIX [Suspect]
     Indication: SMOKING CESSATION THERAPY
     Dosage: 0.5MG, DAILY
     Dates: start: 2013
  2. CHANTIX [Suspect]
     Dosage: 1 MG, 2X/DAY
     Dates: start: 2013, end: 201307
  3. CAPOTEN [Concomitant]
     Indication: HYPERTENSION
     Dosage: 12.5 MG, DAILY

REACTIONS (1)
  - Myocardial infarction [Unknown]
